APPROVED DRUG PRODUCT: ESTAZOLAM
Active Ingredient: ESTAZOLAM
Strength: 1MG
Dosage Form/Route: TABLET;ORAL
Application: A074818 | Product #001 | TE Code: AB
Applicant: WATSON LABORATORIES INC
Approved: Aug 19, 1997 | RLD: No | RS: No | Type: RX